FAERS Safety Report 11079245 (Version 1)
Quarter: 2015Q2

REPORT INFORMATION
  Report Type: Spontaneous
  Country: DE (occurrence: DE)
  Receive Date: 20150430
  Receipt Date: 20150430
  Transmission Date: 20150821
  Serious: Yes (Hospitalization)
  Sender: FDA-Public Use
  Company Number: DE-ASTRAZENECA-2015SE38186

PATIENT
  Age: 24 Year
  Sex: Female

DRUGS (9)
  1. PLANUM [Concomitant]
     Active Substance: DESOGESTREL\ETHINYL ESTRADIOL
     Dates: start: 20070417
  2. OXAZEPAM. [Concomitant]
     Active Substance: OXAZEPAM
     Dates: start: 20070419
  3. LAMOTRIGIN HEXAL [Interacting]
     Active Substance: LAMOTRIGINE
     Route: 065
     Dates: start: 20061026
  4. SEROQUEL [Interacting]
     Active Substance: QUETIAPINE FUMARATE
     Route: 048
     Dates: start: 20061026, end: 20070414
  5. DONEURIN [Interacting]
     Active Substance: DOXEPIN HYDROCHLORIDE
     Route: 065
     Dates: start: 20061026
  6. DONEURIN [Interacting]
     Active Substance: DOXEPIN HYDROCHLORIDE
     Route: 065
     Dates: start: 20060130, end: 20061026
  7. SEROQUEL [Suspect]
     Active Substance: QUETIAPINE FUMARATE
     Route: 048
     Dates: start: 20060130, end: 20061026
  8. TAVOR [Concomitant]
     Active Substance: LORAZEPAM
     Dates: start: 20060130, end: 20070414
  9. TAVOR [Concomitant]
     Active Substance: LORAZEPAM
     Dates: start: 20070414, end: 20070419

REACTIONS (2)
  - Drug interaction [Unknown]
  - Pancytopenia [Recovering/Resolving]

NARRATIVE: CASE EVENT DATE: 20070412
